FAERS Safety Report 6882369-1 (Version None)
Quarter: 2010Q3

REPORT INFORMATION
  Report Type: 
  Country: None (occurrence: None)
  Receive Date: 20100729
  Receipt Date: 20100722
  Transmission Date: 20110219
  Serious: Yes (Hospitalization)
  Sender: FDA-Public Use
  Company Number: DE-ASTRAZENECA-2010SE34435

PATIENT
  Age: 23395 Day
  Sex: Female

DRUGS (5)
  1. TAMOXIFEN CITRATE [Suspect]
     Indication: BREAST CANCER
     Route: 048
     Dates: start: 20090330
  2. TARGIN [Concomitant]
  3. GABAPENTIN [Concomitant]
  4. NOVALGIN [Concomitant]
  5. AMITRIPTHYLIN [Concomitant]

REACTIONS (3)
  - HYSTEROSCOPY [None]
  - UTERINE DILATION AND CURETTAGE [None]
  - UTERINE LEIOMYOMA [None]
